FAERS Safety Report 6214852-6 (Version None)
Quarter: 2009Q2

REPORT INFORMATION
  Report Type: 
  Country: None (occurrence: None)
  Receive Date: 20090601
  Receipt Date: 20081118
  Transmission Date: 20091009
  Serious: Yes (Other)
  Sender: FDA-Public Use
  Company Number: 267790

PATIENT
  Age: 68 Year
  Sex: Female
  Weight: 57.6 kg

DRUGS (11)
  1. ACTIVELLA [Suspect]
     Indication: HORMONE REPLACEMENT THERAPY
     Dosage: ORAL
     Route: 048
     Dates: start: 20010725, end: 20040217
  2. PREMARIN [Suspect]
     Indication: HORMONE REPLACEMENT THERAPY
     Dates: start: 19880101, end: 20000101
  3. PROVERA [Suspect]
     Indication: HORMONE REPLACEMENT THERAPY
     Dosage: 2.5 MG, 5MG
     Dates: start: 19970121, end: 20001207
  4. PROVERA [Suspect]
     Indication: HORMONE REPLACEMENT THERAPY
     Dosage: 2.5 MG, 5MG
     Dates: start: 20001222, end: 20010720
  5. ESTRACE [Suspect]
     Indication: HORMONE REPLACEMENT THERAPY
     Dosage: 1 MG
     Dates: start: 19970121, end: 20010621
  6. XANAX [Concomitant]
  7. VIOXX [Concomitant]
  8. CELEBREX [Concomitant]
  9. LEVAQUIN [Concomitant]
  10. ZITHROMAX [Concomitant]
  11. MEDROL /00049601/ (METHYLPREDNISOLONE) [Concomitant]

REACTIONS (1)
  - BREAST CANCER [None]
